FAERS Safety Report 12975298 (Version 1)
Quarter: 2016Q4

REPORT INFORMATION
  Report Type: Spontaneous
  Country: US (occurrence: US)
  Receive Date: 20161123
  Receipt Date: 20161123
  Transmission Date: 20170207
  Serious: Yes (Other)
  Sender: FDA-Public Use
  Company Number: None

PATIENT
  Age: 27 Year
  Sex: Female
  Weight: 54 kg

DRUGS (1)
  1. PATADAY [Suspect]
     Active Substance: OLOPATADINE HYDROCHLORIDE
     Indication: CONJUNCTIVITIS
     Dosage: ?          QUANTITY:1 DROP(S);?
     Route: 047
     Dates: start: 20161116, end: 20161123

REACTIONS (5)
  - Asthenia [None]
  - Migraine [None]
  - Impaired driving ability [None]
  - Vision blurred [None]
  - Photophobia [None]

NARRATIVE: CASE EVENT DATE: 20161118
